FAERS Safety Report 6023016-0 (Version None)
Quarter: 2008Q4

REPORT INFORMATION
  Report Type: 
  Country: None (occurrence: None)
  Receive Date: 20081230
  Receipt Date: 20081226
  Transmission Date: 20090506
  Serious: Yes (Disabling)
  Sender: FDA-Public Use
  Company Number: JP-ASTRAZENECA-2007AP01039

PATIENT
  Age: 28905 Day
  Sex: Male

DRUGS (7)
  1. MARCAINE [Suspect]
     Indication: SPINAL ANAESTHESIA
     Route: 037
     Dates: start: 20061129
  2. XYLOCAINE [Suspect]
     Indication: EPIDURAL ANAESTHESIA
     Route: 008
     Dates: start: 20061129
  3. NAROPIN [Suspect]
     Indication: EPIDURAL ANAESTHESIA
     Route: 008
     Dates: start: 20061129
  4. MIDAZOLAM HCL [Concomitant]
     Indication: SEDATION
     Route: 042
     Dates: start: 20061129
  5. PENTAZOCINE LACTATE [Concomitant]
     Indication: ANALGESIC THERAPY
     Route: 042
     Dates: start: 20061129
  6. PENTAZOCINE LACTATE [Concomitant]
     Indication: SEDATION
     Route: 042
     Dates: start: 20061129
  7. ROPION [Concomitant]
     Indication: ANALGESIC THERAPY
     Route: 042
     Dates: start: 20061129

REACTIONS (3)
  - ANORECTAL DISORDER [None]
  - BLADDER DISORDER [None]
  - ILLUSION [None]
